FAERS Safety Report 5564610-0 (Version None)
Quarter: 2007Q4

REPORT INFORMATION
  Report Type: 
  Country: None (occurrence: None)
  Receive Date: 20071212
  Receipt Date: 20071203
  Transmission Date: 20080405
  Serious: Yes (Hospitalization)
  Sender: FDA-Public Use
  Company Number: 2007P1000717

PATIENT
  Age: 13 Year
  Sex: Male

DRUGS (1)
  1. BUSULFAN (BUSULFAN) [Suspect]
     Indication: STEM CELL TRANSPLANT
     Dosage: 24.8 ML; QD; IV
     Route: 042
     Dates: start: 20070305, end: 20070308

REACTIONS (6)
  - ANOREXIA [None]
  - BONE MARROW TRANSPLANT [None]
  - MALAISE [None]
  - NAUSEA [None]
  - SEPSIS [None]
  - STOMATITIS [None]
